FAERS Safety Report 12268447 (Version 1)
Quarter: 2016Q2

REPORT INFORMATION
  Report Type: Spontaneous
  Country: FR (occurrence: FR)
  Receive Date: 20160414
  Receipt Date: 20160414
  Transmission Date: 20160815
  Serious: Yes (Life-Threatening, Hospitalization)
  Sender: FDA-Public Use
  Company Number: FR-MYLANLABS-2016M1014977

PATIENT

DRUGS (9)
  1. LANSOPRAZOLE. [Suspect]
     Active Substance: LANSOPRAZOLE
     Indication: PROPHYLAXIS
     Dosage: 30 MG, PM
     Route: 048
     Dates: start: 20150203, end: 20150403
  2. KARDEGIC [Suspect]
     Active Substance: ASPIRIN LYSINE
     Indication: TEMPORAL ARTERITIS
     Dosage: 1 DF, QD
  3. CORTANCYL [Suspect]
     Active Substance: PREDNISONE
     Dosage: 1.5 DF, AM
     Route: 048
  4. CORTANCYL [Suspect]
     Active Substance: PREDNISONE
     Dosage: 1 DF, AM
     Route: 048
  5. LEXOMIL [Concomitant]
     Active Substance: BROMAZEPAM
     Indication: PRODUCT USED FOR UNKNOWN INDICATION
     Dosage: UNK
  6. CORTANCYL [Suspect]
     Active Substance: PREDNISONE
     Dosage: 1 DF, AM
     Route: 048
  7. LOVENOX [Concomitant]
     Active Substance: ENOXAPARIN SODIUM
     Indication: PRODUCT USED FOR UNKNOWN INDICATION
     Dosage: UNK
  8. CORTANCYL [Suspect]
     Active Substance: PREDNISONE
     Indication: TEMPORAL ARTERITIS
     Dosage: 2 DF, AM
     Route: 048
     Dates: start: 201501
  9. NOVORAPID [Concomitant]
     Active Substance: INSULIN ASPART
     Indication: PRODUCT USED FOR UNKNOWN INDICATION
     Dosage: UNK

REACTIONS (6)
  - Pneumonia [Recovering/Resolving]
  - C-reactive protein increased [Unknown]
  - Hypogammaglobulinaemia [Unknown]
  - Febrile bone marrow aplasia [Recovered/Resolved]
  - Sinus tachycardia [Unknown]
  - Agranulocytosis [Recovered/Resolved]

NARRATIVE: CASE EVENT DATE: 20150329
